FAERS Safety Report 4681156-2 (Version None)
Quarter: 2005Q2

REPORT INFORMATION
  Report Type: 
  Country: None (occurrence: None)
  Receive Date: 20050602
  Receipt Date: 20050602
  Transmission Date: 20051028
  Serious: No
  Sender: FDA-Public Use
  Company Number: None

PATIENT
  Age: 64 Year
  Sex: Male

DRUGS (1)
  1. VISIPAQUE 320 [Suspect]
     Dosage: 320 MG/60 ML  STAT    INTRAVENOU
     Route: 042
     Dates: start: 20050422, end: 20050422

REACTIONS (2)
  - DRUG HYPERSENSITIVITY [None]
  - SNEEZING [None]
